FAERS Safety Report 9468151 (Version 1)
Quarter: 2013Q3

REPORT INFORMATION
  Report Type: Spontaneous
  Country: CA (occurrence: CA)
  Receive Date: 20130821
  Receipt Date: 20130821
  Transmission Date: 20140515
  Serious: Yes (Disabling, Other)
  Sender: FDA-Public Use
  Company Number: CA-ROCHE-1264055

PATIENT
  Age: 5 Year
  Sex: Female

DRUGS (4)
  1. MYCOPHENOLATE MOFETIL [Suspect]
     Indication: PRODUCT USED FOR UNKNOWN INDICATION
     Route: 065
  2. PROGRAF [Suspect]
     Indication: PRODUCT USED FOR UNKNOWN INDICATION
     Route: 065
  3. RAPAMUNE [Suspect]
     Indication: PRODUCT USED FOR UNKNOWN INDICATION
     Route: 065
  4. AZATHIOPRINE [Suspect]
     Indication: PRODUCT USED FOR UNKNOWN INDICATION
     Route: 065

REACTIONS (10)
  - Alopecia [Unknown]
  - Anaemia [Unknown]
  - Dermatitis acneiform [Unknown]
  - Diarrhoea [Unknown]
  - Inflammatory pain [Unknown]
  - Rash papular [Unknown]
  - Rash pustular [Unknown]
  - Renal impairment [Unknown]
  - Viral infection [Unknown]
  - Trichostasis spinulosa [Not Recovered/Not Resolved]
